FAERS Safety Report 20343117 (Version 2)
Quarter: 2022Q1

REPORT INFORMATION
  Report Type: Spontaneous
  Country: US (occurrence: US)
  Receive Date: 20220117
  Receipt Date: 20220218
  Transmission Date: 20220423
  Serious: Yes (Other)
  Sender: FDA-Public Use
  Company Number: US-CATALYST PHARMACEUTICALS, INC-2022CAT00019

PATIENT
  Sex: Female
  Weight: 45.351 kg

DRUGS (4)
  1. FIRDAPSE [Suspect]
     Active Substance: AMIFAMPRIDINE PHOSPHATE
     Indication: Myasthenic syndrome
     Dosage: 60 MG, 3X/DAY
     Route: 048
     Dates: start: 20210428
  2. TESSALON [Concomitant]
     Active Substance: BENZONATATE
  3. LEVSIN [Concomitant]
     Active Substance: HYOSCYAMINE SULFATE
  4. NYSTATIN [Concomitant]
     Active Substance: NYSTATIN

REACTIONS (4)
  - Hospice care [Not Recovered/Not Resolved]
  - Condition aggravated [Not Recovered/Not Resolved]
  - Lung neoplasm malignant [Not Recovered/Not Resolved]
  - Brain neoplasm [Not Recovered/Not Resolved]

NARRATIVE: CASE EVENT DATE: 20210101
